FAERS Safety Report 7267368-2 (Version None)
Quarter: 2011Q1

REPORT INFORMATION
  Report Type: 
  Country: None (occurrence: None)
  Receive Date: 20110201
  Receipt Date: 20100706
  Transmission Date: 20110831
  Serious: Yes (Hospitalization)
  Sender: FDA-Public Use
  Company Number: A0870082A

PATIENT

DRUGS (4)
  1. PLAVIX [Concomitant]
  2. ANTIBIOTICS [Concomitant]
  3. ARIXTRA [Suspect]
     Route: 058
     Dates: end: 20100706
  4. ASPIRIN [Concomitant]

REACTIONS (2)
  - PLATELET COUNT DECREASED [None]
  - HAEMORRHAGE [None]
